FAERS Safety Report 17520900 (Version 22)
Quarter: 2022Q2

REPORT INFORMATION
  Report Type: Spontaneous
  Country: JP (occurrence: JP)
  Receive Date: 20200309
  Receipt Date: 20220624
  Transmission Date: 20220721
  Serious: Yes (Hospitalization, Other)
  Sender: FDA-Public Use
  Company Number: JP-BRISTOL-MYERS SQUIBB COMPANY-BMS-2020-019318

PATIENT
  Age: 58 Year
  Sex: Male

DRUGS (10)
  1. OPDIVO [Suspect]
     Active Substance: NIVOLUMAB
     Indication: Malignant melanoma
     Route: 041
     Dates: start: 20200117, end: 20200117
  2. OPDIVO [Suspect]
     Active Substance: NIVOLUMAB
     Route: 041
     Dates: start: 20200207, end: 20200207
  3. OPDIVO [Suspect]
     Active Substance: NIVOLUMAB
     Route: 041
     Dates: start: 20200407, end: 20200407
  4. OPDIVO [Suspect]
     Active Substance: NIVOLUMAB
     Route: 041
     Dates: start: 20200501, end: 20200501
  5. OPDIVO [Suspect]
     Active Substance: NIVOLUMAB
     Route: 041
     Dates: start: 20200625, end: 20200625
  6. YERVOY [Suspect]
     Active Substance: IPILIMUMAB
     Indication: Malignant melanoma
     Dosage: UNK
     Route: 041
     Dates: start: 20200117, end: 20200207
  7. YERVOY [Suspect]
     Active Substance: IPILIMUMAB
     Dosage: UNK
     Route: 041
     Dates: start: 20200407, end: 20200501
  8. YERVOY [Suspect]
     Active Substance: IPILIMUMAB
     Dosage: UNK
     Route: 041
     Dates: start: 20200207, end: 20200207
  9. YERVOY [Suspect]
     Active Substance: IPILIMUMAB
     Dosage: UNK
     Route: 041
     Dates: start: 20200501, end: 20200501
  10. PEMBROLIZUMAB [Suspect]
     Active Substance: PEMBROLIZUMAB
     Indication: Product used for unknown indication
     Dosage: UNK
     Route: 065
     Dates: start: 201904

REACTIONS (11)
  - Laryngitis [Recovering/Resolving]
  - Hypogonadism [Recovered/Resolved]
  - Hypopituitarism [Recovering/Resolving]
  - Secondary adrenocortical insufficiency [Unknown]
  - Hyperthyroidism [Recovering/Resolving]
  - Malignant neoplasm progression [Unknown]
  - Hypophysitis [Unknown]
  - Headache [Unknown]
  - Malaise [Unknown]
  - Pharyngitis [Unknown]
  - Gastric mucosal lesion [Unknown]

NARRATIVE: CASE EVENT DATE: 20200131
